FAERS Safety Report 8453926-6 (Version None)
Quarter: 2012Q2

REPORT INFORMATION
  Report Type: 
  Country: None (occurrence: None)
  Receive Date: 20120620
  Receipt Date: 20120618
  Transmission Date: 20120825
  Serious: No
  Sender: FDA-Public Use
  Company Number: US-TEVA-343858USA

PATIENT
  Sex: Female

DRUGS (4)
  1. AZILECT [Suspect]
     Indication: PARKINSON'S DISEASE
     Dosage: 1 MILLIGRAM;
     Route: 048
     Dates: start: 20120101
  2. ROPINIROLE HYDROCHLORIDE [Concomitant]
     Indication: PARKINSON'S DISEASE
  3. CO Q 10 [Concomitant]
     Indication: PARKINSON'S DISEASE
  4. TRIHEXYPHENIDYL HCL [Concomitant]
     Indication: PARKINSON'S DISEASE

REACTIONS (1)
  - DEPRESSION [None]
